FAERS Safety Report 15189862 (Version 2)
Quarter: 2018Q3

REPORT INFORMATION
  Report Type: Report from Study
  Country: US (occurrence: US)
  Receive Date: 20180724
  Receipt Date: 20180924
  Transmission Date: 20181010
  Serious: No
  Sender: FDA-Public Use
  Company Number: US-SA-2017SA190077

PATIENT
  Age: 53 Year
  Sex: Female
  Weight: 58.3 kg

DRUGS (13)
  1. MELOXICAM. [Concomitant]
     Active Substance: MELOXICAM
     Indication: PROPHYLAXIS
     Dosage: 7.5 MG,QD
     Route: 048
     Dates: start: 20170307
  2. METHIMAZOLE. [Concomitant]
     Active Substance: METHIMAZOLE
     Indication: DRUG THERAPY
     Dosage: 10 MG,QD
     Route: 048
     Dates: start: 20170119, end: 20170217
  3. FLONASE [Concomitant]
     Active Substance: FLUTICASONE PROPIONATE
     Indication: DRUG THERAPY
     Dosage: 50 UG/L, QD
     Route: 045
     Dates: start: 20120528
  4. ALEMTUZUMAB [Suspect]
     Active Substance: ALEMTUZUMAB
     Indication: MULTIPLE SCLEROSIS
     Dosage: 60 MG,UNK
     Route: 041
     Dates: start: 20090504, end: 20090512
  5. ALEMTUZUMAB [Suspect]
     Active Substance: ALEMTUZUMAB
     Dosage: 36 MG,UNK
     Route: 041
     Dates: start: 20120509, end: 20120511
  6. MUCINEX [Concomitant]
     Active Substance: GUAIFENESIN
     Indication: DRUG THERAPY
     Dosage: 600 MG, QD
     Route: 048
     Dates: start: 20120229
  7. FOLIC ACID. [Concomitant]
     Active Substance: FOLIC ACID
     Indication: DRUG THERAPY
     Dosage: 1 MG, QD
     Route: 048
  8. LEVAQUIN [Concomitant]
     Active Substance: LEVOFLOXACIN
     Indication: DRUG THERAPY
     Dosage: 500 MG
     Route: 048
     Dates: start: 20170228
  9. ALLEGRA [Concomitant]
     Active Substance: FEXOFENADINE HYDROCHLORIDE
     Indication: DRUG THERAPY
     Dosage: 180 MG,QD
     Route: 048
     Dates: start: 20170314
  10. HYDROXYZINE [Concomitant]
     Active Substance: HYDROXYZINE HYDROCHLORIDE
     Indication: DRUG THERAPY
     Dosage: 25 MG,QD
     Route: 048
     Dates: start: 20160727
  11. ALEMTUZUMAB [Suspect]
     Active Substance: ALEMTUZUMAB
     Dosage: 36 MG,UNK
     Route: 041
     Dates: start: 20100609, end: 20100611
  12. PARACETAMOL [Concomitant]
     Active Substance: ACETAMINOPHEN
     Indication: DRUG THERAPY
     Dosage: 325 MG,QD
     Route: 048
     Dates: start: 20160727
  13. GABAPENTIN. [Concomitant]
     Active Substance: GABAPENTIN
     Indication: DRUG THERAPY
     Dosage: 300 MG, QD
     Route: 048
     Dates: start: 20090529

REACTIONS (2)
  - Rheumatoid arthritis [Not Recovered/Not Resolved]
  - Malignant melanoma [Recovered/Resolved]

NARRATIVE: CASE EVENT DATE: 201702
